FAERS Safety Report 6395398-1 (Version None)
Quarter: 2009Q4

REPORT INFORMATION
  Report Type: 
  Country: None (occurrence: None)
  Receive Date: 20091009
  Receipt Date: 20090929
  Transmission Date: 20100525
  Serious: Yes (Hospitalization)
  Sender: FDA-Public Use
  Company Number: US-ELI_LILLY_AND_COMPANY-US200909006795

PATIENT
  Sex: Female
  Weight: 113.83 kg

DRUGS (10)
  1. BYETTA [Suspect]
     Indication: DIABETES MELLITUS INADEQUATE CONTROL
     Dosage: 10 UG, 2/D
     Route: 058
     Dates: start: 20080815, end: 20081110
  2. BYETTA [Suspect]
     Dosage: 10 UG, 2/D
     Route: 058
     Dates: start: 20081115, end: 20081121
  3. BYETTA [Suspect]
     Dosage: 10 UG, 2/D
     Route: 058
     Dates: start: 20081126, end: 20081202
  4. PROZAC [Concomitant]
     Dosage: 60 MG, DAILY (1/D)
  5. SPIRIVA [Concomitant]
     Dosage: 18 UG, DAILY (1/D)
  6. ASPIRIN [Concomitant]
     Dosage: 325 MG, DAILY (1/D)
  7. TRICOR [Concomitant]
     Dosage: 145 MG, DAILY (1/D)
  8. LIPITOR [Concomitant]
     Dosage: 80 MG, DAILY (1/D)
  9. SOMA [Concomitant]
     Dosage: 350 MG, AS NEEDED
     Route: 048
     Dates: start: 20081103
  10. TRANXENE [Concomitant]
     Indication: SLEEP APNOEA SYNDROME
     Dosage: 35 MG, UNK
     Route: 048

REACTIONS (10)
  - CHILLS [None]
  - DECREASED APPETITE [None]
  - DEFAECATION URGENCY [None]
  - HYPOTENSION [None]
  - LEUKOCYTOSIS [None]
  - MOUTH ULCERATION [None]
  - OFF LABEL USE [None]
  - PROCTALGIA [None]
  - PYREXIA [None]
  - TREMOR [None]
